FAERS Safety Report 6345679-2 (Version None)
Quarter: 2009Q3

REPORT INFORMATION
  Report Type: 
  Country: None (occurrence: None)
  Receive Date: 20090821
  Receipt Date: 20090602
  Transmission Date: 20100115
  Serious: No
  Sender: FDA-Public Use
  Company Number: 8047388

PATIENT
  Age: 23 Year
  Sex: Female
  Weight: 81.8 kg

DRUGS (5)
  1. CIMZIA [Suspect]
     Indication: CROHN'S DISEASE
     Dosage: 400 MG SC
     Route: 058
     Dates: start: 20081210
  2. PENTASA [Concomitant]
  3. LONOX [Concomitant]
  4. XANAX [Concomitant]
  5. VICODIN [Concomitant]

REACTIONS (1)
  - BLISTER [None]
